FAERS Safety Report 8484768-3 (Version None)
Quarter: 2012Q3

REPORT INFORMATION
  Report Type: 
  Country: None (occurrence: None)
  Receive Date: 20120703
  Receipt Date: 20120627
  Transmission Date: 20120928
  Serious: Yes (Hospitalization, Other)
  Sender: FDA-Public Use
  Company Number: US-SANOFI-AVENTIS-2012SA046470

PATIENT
  Sex: Female

DRUGS (10)
  1. PROMETRIUM [Concomitant]
  2. NAPROXEN [Concomitant]
     Indication: PAIN
  3. LEVOXYL [Concomitant]
  4. MULTAQ [Suspect]
     Indication: ATRIAL FIBRILLATION
     Route: 048
     Dates: start: 20110623, end: 20120210
  5. DABIGATRAN ETEXILATE [Suspect]
     Route: 065
     Dates: start: 20110623
  6. LASIX [Concomitant]
  7. MOTRIN [Concomitant]
     Indication: PAIN
  8. ASPIRIN [Concomitant]
  9. LIPITOR [Concomitant]
  10. ESTRATEST H.S. [Concomitant]

REACTIONS (3)
  - PULMONARY FUNCTION TEST ABNORMAL [None]
  - PLEURAL EFFUSION [None]
  - DYSPNOEA [None]
